FAERS Safety Report 6743142-8 (Version None)
Quarter: 2010Q2

REPORT INFORMATION
  Report Type: 
  Country: None (occurrence: None)
  Receive Date: 20100527
  Receipt Date: 20100518
  Transmission Date: 20101027
  Serious: Yes (Hospitalization, Other)
  Sender: FDA-Public Use
  Company Number: PHHY2010DE15289

PATIENT
  Sex: Female
  Weight: 77 kg

DRUGS (20)
  1. ALISKIREN ALI+ [Suspect]
     Indication: HYPERTENSION
     Dosage: 300 MG PER DAY
     Route: 048
     Dates: start: 20081022, end: 20090701
  2. ALISKIREN ALI+ [Suspect]
     Dosage: 150 MG PER DAY
     Route: 048
     Dates: start: 20091107
  3. ANGIOTENSIN CONVERTING ENZYME BLOCKERS [Concomitant]
     Route: 065
  4. BETA BLOCKING AGENTS [Concomitant]
     Route: 065
  5. CALCIUM CHANNEL BLOCKERS [Concomitant]
     Route: 065
  6. DIURETICS [Concomitant]
     Route: 065
  7. ANTIHYPERTENSIVES [Concomitant]
     Route: 065
  8. PLATELET AGGREGATION INHIBITORS [Concomitant]
     Route: 065
  9. INSULIN [Concomitant]
     Route: 065
  10. ASPIRIN [Concomitant]
     Dosage: 100 MG PER DAY
     Route: 048
     Dates: start: 20080317, end: 20100401
  11. ATACAND [Concomitant]
     Dosage: 16 MG PER DAY
     Route: 048
     Dates: start: 20091104, end: 20100317
  12. BISOPROLOL [Concomitant]
     Dosage: 10 MG PER DAY
     Route: 048
     Dates: start: 20071203, end: 20100317
  13. AMLODIPINE [Concomitant]
     Dosage: 10 MG PER DAY
     Route: 048
     Dates: start: 20090806, end: 20100401
  14. PANTOPRAZOLE [Concomitant]
     Dosage: 40 MG/D
     Route: 048
     Dates: start: 20090609
  15. PRAVASTATIN [Concomitant]
     Dosage: 40 MG PER DAY
     Route: 048
     Dates: start: 20090609
  16. TORASEMIDE [Concomitant]
     Dosage: 20 MG/D
     Route: 048
     Dates: start: 20081022
  17. NOVORAPID [Concomitant]
     Dosage: 43 I.U.
     Route: 058
     Dates: start: 20030430
  18. PROTAPHAN [Concomitant]
     Dosage: 22 I.U.
     Route: 058
     Dates: start: 20030430
  19. ANTIPLATELET [Concomitant]
  20. CHLOSTEROL-LOWERING THERAPY [Concomitant]

REACTIONS (5)
  - BLOOD POTASSIUM INCREASED [None]
  - BLOOD PRESSURE INCREASED [None]
  - DYSPNOEA [None]
  - GLYCOSYLATED HAEMOGLOBIN INCREASED [None]
  - HYPERTENSIVE CRISIS [None]
